FAERS Safety Report 6140515-1 (Version None)
Quarter: 2009Q1

REPORT INFORMATION
  Report Type: 
  Country: None (occurrence: None)
  Receive Date: 20090331
  Receipt Date: 20090317
  Transmission Date: 20090719
  Serious: Yes (Other)
  Sender: FDA-Public Use
  Company Number: PD101

PATIENT
  Age: 20 Year
  Sex: Female

DRUGS (4)
  1. GRANISETRON, VARIOUS STRENGTHS [Suspect]
     Indication: PROPHYLAXIS OF NAUSEA AND VOMITING
     Dosage: 40 UG/KG INTRAVENOUS DAY 1; 4 OR 8 MG INTRAVENOUS DAY 2, 3
     Route: 042
  2. GRANISETRON, VARIOUS STRENGTHS [Suspect]
     Indication: VOMITING
     Dosage: 40 UG/KG INTRAVENOUS DAY 1; 4 OR 8 MG INTRAVENOUS DAY 2, 3
     Route: 042
  3. CISPLATIN [Concomitant]
  4. ANTHRACYCLINE [Concomitant]

REACTIONS (1)
  - ELECTROCARDIOGRAM QT PROLONGED [None]
